FAERS Safety Report 22230315 (Version 3)
Quarter: 2023Q2

REPORT INFORMATION
  Report Type: Spontaneous
  Country: US (occurrence: None)
  Receive Date: 20230419
  Receipt Date: 20230626
  Transmission Date: 20230721
  Serious: No
  Sender: FDA-Public Use
  Company Number: 2023A087790

PATIENT
  Sex: Male
  Weight: 95.3 kg

DRUGS (2)
  1. BREZTRI [Suspect]
     Active Substance: BUDESONIDE\FORMOTEROL\GLYCOPYRROLATE
     Indication: Dyspnoea
     Dosage: 160 UG, TWO TIMES A DAY
     Route: 055
  2. BREZTRI [Suspect]
     Active Substance: BUDESONIDE\FORMOTEROL\GLYCOPYRROLATE
     Indication: Cardiac disorder
     Dosage: 160 UG, TWO TIMES A DAY
     Route: 055

REACTIONS (5)
  - Feeling abnormal [Recovered/Resolved]
  - Drug dose omission by device [Unknown]
  - Device use issue [Recovering/Resolving]
  - Device delivery system issue [Recovering/Resolving]
  - Wrong technique in device usage process [Unknown]
